FAERS Safety Report 5856814-4 (Version None)
Quarter: 2008Q3

REPORT INFORMATION
  Report Type: 
  Country: None (occurrence: None)
  Receive Date: 20080822
  Receipt Date: 20080822
  Transmission Date: 20090109
  Serious: Yes (Hospitalization)
  Sender: FDA-Public Use
  Company Number: None

PATIENT
  Sex: Female
  Weight: 55.1 kg

DRUGS (7)
  1. TEMOZOLOMIDE [Suspect]
     Dosage: 2015 MG
  2. CITRUCEL [Concomitant]
  3. COLACE [Concomitant]
  4. SULFAMETHOXAZOLE [Concomitant]
  5. TRIMETHOPRIM [Concomitant]
  6. COMPRAZINE [Concomitant]
  7. KYTRIL [Concomitant]

REACTIONS (1)
  - LYMPHOCYTE COUNT DECREASED [None]
